FAERS Safety Report 9084994 (Version 2)
Quarter: 2013Q2

REPORT INFORMATION
  Report Type: Spontaneous
  Country: BR (occurrence: BR)
  Receive Date: 20130130
  Receipt Date: 20130411
  Transmission Date: 20140414
  Serious: Yes (Other)
  Sender: FDA-Public Use
  Company Number: PHHY2013BR007114

PATIENT
  Sex: Female

DRUGS (2)
  1. RITALINA [Suspect]
     Indication: ATTENTION DEFICIT/HYPERACTIVITY DISORDER
     Dosage: 1 DF, BID
  2. QUETIAPINE FUMARATE [Concomitant]
     Indication: TIC
     Dosage: 1 DF (AT NIGHT), UNK
     Route: 048

REACTIONS (1)
  - Moderate mental retardation [Not Recovered/Not Resolved]
